FAERS Safety Report 8091875-6 (Version None)
Quarter: 2012Q1

REPORT INFORMATION
  Report Type: 
  Country: None (occurrence: None)
  Receive Date: 20120129
  Receipt Date: 20111115
  Transmission Date: 20120608
  Serious: No
  Sender: FDA-Public Use
  Company Number: US-ABBOTT-11P-163-0874157-00

PATIENT
  Age: 50 Year
  Sex: Female

DRUGS (13)
  1. FISH OIL [Concomitant]
     Indication: ROUTINE HEALTH MAINTENANCE
     Dosage: DAILY
  2. PREDNISONE TAB [Concomitant]
     Indication: ARTHRITIS
  3. FLAX SEED OIL [Concomitant]
     Indication: ROUTINE HEALTH MAINTENANCE
  4. HYDROXYCHLOROQUINE SULFATE [Concomitant]
     Indication: ARTHRITIS
  5. VITAMIN D [Concomitant]
     Indication: ROUTINE HEALTH MAINTENANCE
  6. MULTI-VITAMIN [Concomitant]
     Indication: ROUTINE HEALTH MAINTENANCE
     Dosage: DAILY
  7. VITAMIN B COMPLEX CAP [Concomitant]
     Indication: ROUTINE HEALTH MAINTENANCE
     Dosage: DAILY
  8. VIT C [Concomitant]
     Indication: ROUTINE HEALTH MAINTENANCE
  9. STOOL SOFTENER [Concomitant]
     Indication: BOWEL MOVEMENT IRREGULARITY
     Dosage: DAILY
  10. METHOTREXATE [Concomitant]
     Indication: ARTHRITIS
  11. HUMIRA [Suspect]
     Indication: RHEUMATOID ARTHRITIS
     Dates: start: 20111018
  12. FIBER [Concomitant]
     Indication: BOWEL MOVEMENT IRREGULARITY
     Dosage: DAILY
  13. FOLIC ACID [Concomitant]
     Indication: ROUTINE HEALTH MAINTENANCE
     Route: 048

REACTIONS (1)
  - INJECTION SITE PAIN [None]
